FAERS Safety Report 9142547 (Version 2)
Quarter: 2014Q4

REPORT INFORMATION
  Report Type: Spontaneous
  Country: US (occurrence: US)
  Receive Date: 20130306
  Receipt Date: 20141024
  Transmission Date: 20150529
  Serious: Yes (Hospitalization, Other)
  Sender: FDA-Public Use
  Company Number: US-AMGEN-USASP2013012432

PATIENT
  Age: 57 Year
  Sex: Female
  Weight: 68.93 kg

DRUGS (8)
  1. PROLIA [Suspect]
     Active Substance: DENOSUMAB
     Indication: OSTEOPOROSIS POSTMENOPAUSAL
     Dosage: 60 MG, Q6MO
     Route: 058
     Dates: start: 20120117, end: 20120725
  2. MULTIVITAMIN                       /00097801/ [Concomitant]
     Active Substance: VITAMINS
  3. MAGNESIUM [Concomitant]
     Active Substance: MAGNESIUM
     Dates: start: 2013
  4. PROLIA [Suspect]
     Active Substance: DENOSUMAB
     Route: 058
  5. CALCIUM WITH VITAMIN D             /00944201/ [Concomitant]
     Active Substance: CALCIUM\VITAMIN D
  6. VIVELLE                            /00045401/ [Concomitant]
     Indication: HORMONE REPLACEMENT THERAPY
     Dosage: 0.1 MG, 2 TIMES/WK
     Route: 048
  7. SYNTHROID [Concomitant]
     Active Substance: LEVOTHYROXINE SODIUM
     Dosage: 100 MUG, QD
     Route: 048
  8. MAGNESIUM [Concomitant]
     Active Substance: MAGNESIUM
     Dosage: UNK

REACTIONS (12)
  - Muscle spasms [Unknown]
  - Tendon disorder [Unknown]
  - Eyelid oedema [Unknown]
  - Pain in extremity [Recovered/Resolved]
  - Tenderness [Unknown]
  - Paraesthesia [Recovered/Resolved]
  - Stress fracture [Recovered/Resolved]
  - Sleep disorder [Unknown]
  - Foot deformity [Unknown]
  - Feeling hot [Unknown]
  - Meniscus injury [Recovered/Resolved]
  - Gait disturbance [Unknown]

NARRATIVE: CASE EVENT DATE: 201212
